FAERS Safety Report 7549885-0 (Version None)
Quarter: 2011Q2

REPORT INFORMATION
  Report Type: 
  Country: None (occurrence: None)
  Receive Date: 20110615
  Receipt Date: 20110531
  Transmission Date: 20111010
  Serious: Yes (Hospitalization, Other)
  Sender: FDA-Public Use
  Company Number: IT-JNJFOC-20110601369

PATIENT

DRUGS (4)
  1. AZATHIOPRINE [Concomitant]
  2. REMICADE [Suspect]
     Indication: CROHN'S DISEASE
     Dosage: AT WEEK 26 (5TH ADMINISTRATION)
     Route: 042
  3. METHOTREXATE [Concomitant]
  4. HYDROCORTISONE [Concomitant]

REACTIONS (1)
  - RECTAL STENOSIS [None]
